FAERS Safety Report 10040979 (Version 1)
Quarter: 2014Q1

REPORT INFORMATION
  Report Type: Spontaneous
  Country: US (occurrence: None)
  Receive Date: 20140326
  Receipt Date: 20140326
  Transmission Date: 20141002
  Serious: Yes (Death)
  Sender: FDA-Public Use
  Company Number: None

PATIENT
  Age: 33 Year
  Sex: Female
  Weight: 87 kg

DRUGS (2)
  1. ZANAMIVIR [Suspect]
     Indication: INFLUENZA
  2. ZANAMIVIR [Suspect]
     Indication: SHOCK

REACTIONS (1)
  - Mechanical ventilation [None]
